FAERS Safety Report 19215717 (Version 1)
Quarter: 2021Q2

REPORT INFORMATION
  Report Type: Spontaneous
  Country: US (occurrence: US)
  Receive Date: 20210505
  Receipt Date: 20210505
  Transmission Date: 20210717
  Serious: No
  Sender: FDA-Public Use
  Company Number: US-GLAXOSMITHKLINE-US2021094209

PATIENT
  Sex: Female

DRUGS (1)
  1. BREO ELLIPTA [Suspect]
     Active Substance: FLUTICASONE FUROATE\VILANTEROL TRIFENATATE
     Indication: PRODUCT USED FOR UNKNOWN INDICATION
     Dosage: UNK,100/25UG
     Route: 055

REACTIONS (4)
  - Oral candidiasis [Recovered/Resolved with Sequelae]
  - Product dose omission issue [Unknown]
  - Oral pain [Unknown]
  - Inappropriate schedule of product administration [Unknown]
